FAERS Safety Report 5939412-3 (Version None)
Quarter: 2008Q4

REPORT INFORMATION
  Report Type: 
  Country: None (occurrence: None)
  Receive Date: 20081103
  Receipt Date: 20081022
  Transmission Date: 20090506
  Serious: Yes (Hospitalization)
  Sender: FDA-Public Use
  Company Number: JP-PFIZER INC-2008090602

PATIENT
  Age: 63 Year
  Sex: Female

DRUGS (4)
  1. DISOPYRAMIDE PHOSPHATE [Suspect]
     Indication: ATRIAL FIBRILLATION
     Dosage: DAILY DOSE:300MG
     Dates: start: 20061005
  2. DISOPYRAMIDE PHOSPHATE [Suspect]
     Indication: CARDIAC FAILURE
  3. FUROSEMIDE [Suspect]
     Dosage: DAILY DOSE:20MG
     Dates: start: 20061005
  4. PREDNISOLONE [Concomitant]
     Indication: MYASTHENIA GRAVIS
     Dosage: DAILY DOSE:10MG

REACTIONS (6)
  - ELECTROCARDIOGRAM QT PROLONGED [None]
  - HYPOKALAEMIA [None]
  - MYASTHENIA GRAVIS [None]
  - RESPIRATORY FAILURE [None]
  - STRESS CARDIOMYOPATHY [None]
  - TORSADE DE POINTES [None]
